FAERS Safety Report 8106999-4 (Version None)
Quarter: 2012Q1

REPORT INFORMATION
  Report Type: 
  Country: None (occurrence: None)
  Receive Date: 20120202
  Receipt Date: 20120202
  Transmission Date: 20120608
  Serious: Yes (Disabling)
  Sender: FDA-Public Use
  Company Number: None

PATIENT
  Age: 56 Year
  Sex: Female
  Weight: 58.967 kg

DRUGS (2)
  1. SULFAMETHOXAZOLE AND TRIMETHOPRIM [Suspect]
     Indication: PROPHYLAXIS
     Dosage: 4 TSP
     Route: 048
     Dates: start: 20120105, end: 20120110
  2. SULFAMETHOXAZOLE AND TRIMETHOPRIM [Suspect]
     Indication: COUGH
     Dosage: 4 TSP
     Route: 048
     Dates: start: 20120105, end: 20120110

REACTIONS (3)
  - PRURITUS [None]
  - ARTHRALGIA [None]
  - NO THERAPEUTIC RESPONSE [None]
